FAERS Safety Report 4697322-6 (Version None)
Quarter: 2005Q2

REPORT INFORMATION
  Report Type: 
  Country: None (occurrence: None)
  Receive Date: 20050620
  Receipt Date: 20050609
  Transmission Date: 20051028
  Serious: Yes (Other)
  Sender: FDA-Public Use
  Company Number: 2005-06-0526

PATIENT
  Age: 67 Year
  Sex: Male
  Weight: 65 kg

DRUGS (5)
  1. PEG-INTRON [Suspect]
     Indication: HEPATITIS C
     Dosage: 100 MCG QW SUBCUTANEOUS
     Route: 058
     Dates: start: 20050607, end: 20050607
  2. REBETOL [Suspect]
     Indication: HEPATITIS C
     Dosage: 800-400 MG* ORAL
     Route: 048
     Dates: start: 20050607, end: 20050607
  3. REBETOL [Suspect]
     Indication: HEPATITIS C
     Dosage: 800-400 MG* ORAL
     Route: 048
     Dates: start: 20050607, end: 20050608
  4. REBETOL [Suspect]
     Indication: HEPATITIS C
     Dosage: 800-400 MG* ORAL
     Route: 048
     Dates: start: 20050608, end: 20050608
  5. OLMETEC (OLMESARTAN MEDOXOMIL) TABLETS [Concomitant]

REACTIONS (3)
  - ATRIAL FIBRILLATION [None]
  - CHEST PAIN [None]
  - ELECTROCARDIOGRAM ST-T CHANGE [None]
